FAERS Safety Report 9862327 (Version 1)
Quarter: 2014Q1

REPORT INFORMATION
  Report Type: Spontaneous
  Country: US (occurrence: US)
  Receive Date: 20140203
  Receipt Date: 20140203
  Transmission Date: 20141002
  Serious: Yes (Other)
  Sender: FDA-Public Use
  Company Number: US-BAYER-2014-017039

PATIENT
  Age: 20 Year
  Sex: Female

DRUGS (3)
  1. YAZ [Suspect]
     Dosage: UNK
  2. ISONIAZID [Concomitant]
     Indication: TUBERCULOSIS
     Dosage: 300 MG, QD
  3. PYRIDOXINE [Concomitant]
     Indication: TUBERCULOSIS
     Dosage: 50  MG, QD
     Route: 048

REACTIONS (2)
  - Deep vein thrombosis [None]
  - Pulmonary embolism [None]
